FAERS Safety Report 5443195-3 (Version None)
Quarter: 2007Q3

REPORT INFORMATION
  Report Type: 
  Country: None (occurrence: None)
  Receive Date: 20070828
  Receipt Date: 20070813
  Transmission Date: 20080115
  Serious: Yes (Life-Threatening, Disabling, Other)
  Sender: FDA-Public Use
  Company Number: 200710486BBE

PATIENT
  Age: 24 Month
  Sex: Male

DRUGS (17)
  1. HELIXATE [Suspect]
     Indication: FACTOR VIII DEFICIENCY
     Dosage: 750 IU, OW, INTRAVENOUS; 71 IU/KG, TOTAL DAILY, INTRAVE; 71 IU/KG, TOTAL DAILY, INTRAVE
     Route: 042
     Dates: start: 20070108, end: 20070110
  2. HELIXATE [Suspect]
     Indication: FACTOR VIII DEFICIENCY
     Dosage: 750 IU, OW, INTRAVENOUS; 71 IU/KG, TOTAL DAILY, INTRAVE; 71 IU/KG, TOTAL DAILY, INTRAVE
     Route: 042
     Dates: start: 20061023, end: 20070420
  3. HELIXATE [Suspect]
     Indication: FACTOR VIII DEFICIENCY
     Dosage: 750 IU, OW, INTRAVENOUS; 71 IU/KG, TOTAL DAILY, INTRAVE; 71 IU/KG, TOTAL DAILY, INTRAVE
     Route: 042
     Dates: start: 20070116, end: 20070601
  4. HELIXATE [Suspect]
     Indication: FACTOR VIII DEFICIENCY
     Dosage: 750 IU, OW, INTRAVENOUS; 71 IU/KG, TOTAL DAILY, INTRAVE; 71 IU/KG, TOTAL DAILY, INTRAVE
     Route: 042
     Dates: start: 20070322, end: 20070615
  5. HELIXATE [Suspect]
     Indication: FACTOR VIII DEFICIENCY
     Dosage: 750 IU, OW, INTRAVENOUS; 71 IU/KG, TOTAL DAILY, INTRAVE; 71 IU/KG, TOTAL DAILY, INTRAVE
     Route: 042
     Dates: start: 20070216, end: 20070630
  6. HELIXATE [Suspect]
     Indication: FACTOR VIII DEFICIENCY
     Dosage: 750 IU, OW, INTRAVENOUS; 71 IU/KG, TOTAL DAILY, INTRAVE; 71 IU/KG, TOTAL DAILY, INTRAVE
     Route: 042
     Dates: start: 20070511, end: 20070630
  7. HELIXATE [Suspect]
     Indication: FACTOR VIII DEFICIENCY
     Dosage: 750 IU, OW, INTRAVENOUS; 71 IU/KG, TOTAL DAILY, INTRAVE; 71 IU/KG, TOTAL DAILY, INTRAVE
     Route: 042
     Dates: start: 20061023
  8. HELIXATE [Suspect]
     Indication: FACTOR VIII DEFICIENCY
     Dosage: 750 IU, OW, INTRAVENOUS; 71 IU/KG, TOTAL DAILY, INTRAVE; 71 IU/KG, TOTAL DAILY, INTRAVE
     Route: 042
     Dates: start: 20061023
  9. HELIXATE [Suspect]
     Indication: FACTOR VIII DEFICIENCY
     Dosage: 750 IU, OW, INTRAVENOUS; 71 IU/KG, TOTAL DAILY, INTRAVE; 71 IU/KG, TOTAL DAILY, INTRAVE
     Route: 042
     Dates: start: 20070711
  10. HELIXATE [Suspect]
     Indication: FACTOR VIII DEFICIENCY
     Dosage: 750 IU, OW, INTRAVENOUS; 71 IU/KG, TOTAL DAILY, INTRAVE; 71 IU/KG, TOTAL DAILY, INTRAVE
     Route: 042
     Dates: start: 20070713
  11. HELIXATE [Suspect]
     Indication: FACTOR VIII DEFICIENCY
     Dosage: 750 IU, OW, INTRAVENOUS; 71 IU/KG, TOTAL DAILY, INTRAVE; 71 IU/KG, TOTAL DAILY, INTRAVE
     Route: 042
     Dates: start: 20070713
  12. HELIXATE [Suspect]
  13. HELIXATE [Suspect]
  14. HELIXATE [Suspect]
  15. HELIXATE [Suspect]
  16. HELIXATE [Suspect]
  17. HELIXATE [Suspect]

REACTIONS (2)
  - FACTOR VIII INHIBITION [None]
  - INHIBITING ANTIBODIES [None]
